FAERS Safety Report 20062649 (Version 2)
Quarter: 2021Q4

REPORT INFORMATION
  Report Type: Report from Study
  Country: US (occurrence: US)
  Receive Date: 20211112
  Receipt Date: 20211201
  Transmission Date: 20220303
  Serious: Yes (Other)
  Sender: FDA-Public Use
  Company Number: US-GILEAD-2021-0556124

PATIENT
  Sex: Female

DRUGS (4)
  1. AMBRISENTAN [Suspect]
     Active Substance: AMBRISENTAN
     Indication: Product used for unknown indication
     Dosage: 5 MG, QD
     Route: 048
     Dates: start: 20200518
  2. REMODULIN [Concomitant]
     Active Substance: TREPROSTINIL
  3. BENZONATATE [Concomitant]
     Active Substance: BENZONATATE
     Dosage: 200 MG
  4. AUGUMENTIN ES [Concomitant]
     Dosage: 875MG/125 MG

REACTIONS (6)
  - Central venous catheterisation [Unknown]
  - Catheter site haemorrhage [Unknown]
  - Catheter site extravasation [Unknown]
  - Catheter placement [Unknown]
  - Cough [Unknown]
  - Sinusitis [Unknown]
